FAERS Safety Report 20645479 (Version 1)
Quarter: 2022Q1

REPORT INFORMATION
  Report Type: Spontaneous
  Country: US (occurrence: US)
  Receive Date: 20220328
  Receipt Date: 20220328
  Transmission Date: 20220423
  Serious: Yes (Disabling, Other)
  Sender: FDA-Public Use
  Company Number: US-TEVA-2022-US-2022068

PATIENT
  Age: 54 Year
  Sex: Female

DRUGS (24)
  1. DOCETAXEL [Suspect]
     Active Substance: DOCETAXEL
     Indication: Breast cancer female
     Dosage: 80MG+40 MG EVERY 2 WEEKS
     Route: 042
     Dates: start: 20141212
  2. DOCETAXEL [Suspect]
     Active Substance: DOCETAXEL
     Dosage: 80MG+40 MG EVERY 2 WEEKS
     Route: 042
     Dates: start: 20141229
  3. DOCETAXEL [Suspect]
     Active Substance: DOCETAXEL
     Indication: Breast cancer female
     Dosage: 40MG+80MG EVERY 2 WEEKS
     Route: 042
     Dates: start: 20150121
  4. DOCETAXEL [Suspect]
     Active Substance: DOCETAXEL
     Indication: Breast cancer female
     Dosage: 40MG+80MG EVERY 2 WEEKS
     Route: 042
     Dates: start: 20150204
  5. CYCLOPHOSPHAMIDE [Suspect]
     Active Substance: CYCLOPHOSPHAMIDE
     Indication: Breast cancer female
     Dosage: 920 MILLIGRAM DAILY; 4 CYCLES EVERY 2 WEEKS
     Route: 042
     Dates: start: 20141015
  6. CYCLOPHOSPHAMIDE [Suspect]
     Active Substance: CYCLOPHOSPHAMIDE
     Dosage: 920 MILLIGRAM DAILY; 4 CYCLES EVERY 2 WEEKS
     Route: 042
     Dates: start: 20141029
  7. CYCLOPHOSPHAMIDE [Suspect]
     Active Substance: CYCLOPHOSPHAMIDE
     Dosage: 920 MILLIGRAM DAILY; 4 CYCLES EVERY 2 WEEKS
     Route: 042
     Dates: start: 20141112
  8. CYCLOPHOSPHAMIDE [Suspect]
     Active Substance: CYCLOPHOSPHAMIDE
     Dosage: 920 MILLIGRAM DAILY; 4 CYCLES EVERY 2 WEEKS
     Route: 042
     Dates: start: 20141125
  9. NEULASTA [Suspect]
     Active Substance: PEGFILGRASTIM
     Indication: Breast cancer female
     Route: 042
     Dates: start: 20141016
  10. NEULASTA [Suspect]
     Active Substance: PEGFILGRASTIM
     Route: 042
     Dates: start: 20141030
  11. NEULASTA [Suspect]
     Active Substance: PEGFILGRASTIM
     Route: 042
     Dates: start: 20141113
  12. NEULASTA [Suspect]
     Active Substance: PEGFILGRASTIM
     Route: 042
     Dates: start: 20141126
  13. NEULASTA [Suspect]
     Active Substance: PEGFILGRASTIM
     Route: 042
     Dates: start: 20141213
  14. NEULASTA [Suspect]
     Active Substance: PEGFILGRASTIM
     Route: 042
     Dates: start: 20141230
  15. NEULASTA [Suspect]
     Active Substance: PEGFILGRASTIM
     Route: 042
     Dates: start: 20150122
  16. Ondasartan HCL [Concomitant]
     Dosage: 24 MILLIGRAM DAILY; EVERY 8 HOURS
     Route: 048
  17. PROMETHAZINE HYDROCHLORIDE [Concomitant]
     Active Substance: PROMETHAZINE HYDROCHLORIDE
     Dosage: EVERY 4-6 HOURS
     Route: 048
  18. EMLA [Concomitant]
     Active Substance: LIDOCAINE\PRILOCAINE
     Route: 061
  19. LABETALOL HYDROCHLORIDE [Concomitant]
     Active Substance: LABETALOL HYDROCHLORIDE
     Dosage: 100 MILLIGRAM DAILY;
     Route: 048
  20. PERCOCET [Concomitant]
     Active Substance: ACETAMINOPHEN\OXYCODONE HYDROCHLORIDE
     Dosage: 7.5-325 MG PRN
     Route: 048
  21. SENOKOT [Concomitant]
     Active Substance: SENNOSIDES
     Route: 048
  22. ZANAFLEX [Concomitant]
     Active Substance: TIZANIDINE HYDROCHLORIDE
     Dosage: 4 MILLIGRAM DAILY;
     Route: 048
     Dates: start: 1985
  23. CYMBALTA [Concomitant]
     Active Substance: DULOXETINE HYDROCHLORIDE
     Dosage: 60 MILLIGRAM DAILY;
     Route: 048
     Dates: start: 1985
  24. XANAX [Concomitant]
     Active Substance: ALPRAZOLAM
     Dosage: .1667 MILLIGRAM DAILY; TID
     Route: 048

REACTIONS (17)
  - Alopecia areata [Not Recovered/Not Resolved]
  - Madarosis [Not Recovered/Not Resolved]
  - Hair texture abnormal [Not Recovered/Not Resolved]
  - Breast cancer female [Unknown]
  - Hair colour changes [Not Recovered/Not Resolved]
  - Anaemia [Recovered/Resolved]
  - Nausea [Recovering/Resolving]
  - Vomiting [Unknown]
  - Bone pain [Recovered/Resolved]
  - Fatigue [Not Recovered/Not Resolved]
  - Dyspnoea exertional [Unknown]
  - Pain [Unknown]
  - Decreased appetite [Unknown]
  - Pyrexia [Unknown]
  - Constipation [Not Recovered/Not Resolved]
  - Arthralgia [Not Recovered/Not Resolved]
  - Dehydration [Unknown]

NARRATIVE: CASE EVENT DATE: 20140101
